APPROVED DRUG PRODUCT: ELIGLUSTAT TARTRATE
Active Ingredient: ELIGLUSTAT TARTRATE
Strength: EQ 84MG BASE
Dosage Form/Route: CAPSULE;ORAL
Application: A212449 | Product #001
Applicant: DR REDDYS LABORATORIES LTD
Approved: Aug 17, 2022 | RLD: No | RS: No | Type: DISCN